FAERS Safety Report 5855851-3 (Version None)
Quarter: 2008Q3

REPORT INFORMATION
  Report Type: 
  Country: None (occurrence: None)
  Receive Date: 20080825
  Receipt Date: 20080116
  Transmission Date: 20090109
  Serious: No
  Sender: FDA-Public Use
  Company Number: A0702183A

PATIENT
  Sex: Female

DRUGS (3)
  1. MALARONE [Suspect]
     Indication: PROPHYLAXIS
     Route: 048
  2. TIMOPTIC [Concomitant]
  3. UNKNOWN MEDICATION [Concomitant]

REACTIONS (1)
  - INTRAOCULAR PRESSURE INCREASED [None]
